FAERS Safety Report 7266248-6 (Version None)
Quarter: 2011Q1

REPORT INFORMATION
  Report Type: 
  Country: None (occurrence: None)
  Receive Date: 20110131
  Receipt Date: 20110124
  Transmission Date: 20110831
  Serious: Yes (Other)
  Sender: FDA-Public Use
  Company Number: BE-BRACCO-000014

PATIENT
  Sex: Female

DRUGS (2)
  1. MULTIHANCE [Suspect]
     Indication: ENDOMETRIAL HYPERTROPHY
     Dates: start: 20100930, end: 20100930
  2. MULTIHANCE [Suspect]
     Indication: NUCLEAR MAGNETIC RESONANCE IMAGING
     Dates: start: 20100930, end: 20100930

REACTIONS (8)
  - LOSS OF CONSCIOUSNESS [None]
  - OFF LABEL USE [None]
  - NAUSEA [None]
  - VOMITING [None]
  - BRADYCARDIA [None]
  - FATIGUE [None]
  - MALAISE [None]
  - PRESYNCOPE [None]
